FAERS Safety Report 9146716 (Version 1)
Quarter: 2013Q1

REPORT INFORMATION
  Report Type: Spontaneous
  Country: US (occurrence: None)
  Receive Date: 20130212
  Receipt Date: 20130212
  Transmission Date: 20140127
  Serious: Yes (Death, Other)
  Sender: FDA-Public Use
  Company Number: TPA2012A03287

PATIENT
  Age: 81 Year
  Sex: Male
  Weight: 101.15 kg

DRUGS (1)
  1. ACTOS (PIOGLITAZONE HYDROCHLORIDE) [Suspect]
     Indication: TYPE 2 DIABETES MELLITUS
     Dates: start: 200707, end: 2009

REACTIONS (1)
  - Bladder cancer [None]
